FAERS Safety Report 22014624 (Version 1)
Quarter: 2023Q1

REPORT INFORMATION
  Report Type: Spontaneous
  Country: CN (occurrence: CN)
  Receive Date: 20230221
  Receipt Date: 20230221
  Transmission Date: 20230418
  Serious: No
  Sender: FDA-Public Use
  Company Number: CN-ORGANON-O2302CHN001218

PATIENT
  Sex: Male

DRUGS (1)
  1. NASONEX [Suspect]
     Active Substance: MOMETASONE FUROATE
     Dosage: 1 PRESS PER NOSTRIL, QD
     Route: 045

REACTIONS (2)
  - Wrong technique in device usage process [Unknown]
  - Incorrect route of product administration [Unknown]
